FAERS Safety Report 6379689-6 (Version None)
Quarter: 2009Q3

REPORT INFORMATION
  Report Type: 
  Country: None (occurrence: None)
  Receive Date: 20090928
  Receipt Date: 20090923
  Transmission Date: 20100115
  Serious: Yes (Hospitalization, Other)
  Sender: FDA-Public Use
  Company Number: ES-ROXANE LABORATORIES, INC.-2009-RO-00983RO

PATIENT
  Age: 45 Year
  Sex: Female

DRUGS (24)
  1. METHADONE HYDROCHLORIDE [Suspect]
     Indication: DRUG DEPENDENCE
  2. METHADONE HYDROCHLORIDE [Suspect]
     Dosage: 35 MG
     Dates: start: 20060201, end: 20060801
  3. METHADONE HYDROCHLORIDE [Suspect]
     Dosage: 45 MG
     Dates: start: 20060801, end: 20061001
  4. METHADONE HYDROCHLORIDE [Suspect]
     Dosage: 35 MG
     Dates: start: 20061001, end: 20070101
  5. METHADONE HYDROCHLORIDE [Suspect]
     Dosage: 30 MG
     Dates: start: 20070101, end: 20070201
  6. METHADONE HYDROCHLORIDE [Suspect]
     Dosage: 25 MG
     Dates: start: 20070201
  7. LITHIUM CARBONATE [Suspect]
     Indication: BIPOLAR I DISORDER
     Dosage: 400 MG
     Dates: start: 20060201, end: 20070101
  8. LITHIUM CARBONATE [Suspect]
     Dosage: 600 MG
     Dates: start: 20070101, end: 20070201
  9. LITHIUM CARBONATE [Suspect]
     Dosage: 400 MG
     Dates: start: 20070201
  10. COCAINE [Suspect]
     Route: 045
  11. COCAINE [Suspect]
  12. ALPRAZOLAM INTENSOL [ORAL SOLUTION (CONCENTRATE)] 1 MG/ML [Suspect]
  13. ALPRAZOLAM INTENSOL [ORAL SOLUTION (CONCENTRATE)] 1 MG/ML [Suspect]
     Dosage: 6 MG
  14. CANNABIS [Suspect]
  15. CLORAZEPATE DIPOTASSIUM [Suspect]
     Dosage: 20 MG
  16. OLANZAPINE [Suspect]
     Dosage: 10 MG
     Dates: start: 20060201
  17. GABAPENTIN [Suspect]
     Dosage: 900 MG
     Dates: start: 20060201, end: 20061001
  18. GABAPENTIN [Suspect]
     Dosage: 1200 MG
     Dates: start: 20061001
  19. LACTITOL [Suspect]
     Dosage: 30 MG
  20. SPIRONOLACTONE [Suspect]
     Dosage: 100 MG
  21. FOLIC ACID [Suspect]
     Dosage: 5 MG
  22. PHYTOMENADIONE [Suspect]
  23. LAXATIVE [Suspect]
     Dates: end: 20060701
  24. LAXATIVE [Suspect]
     Dosage: 20 MG

REACTIONS (8)
  - ANTIPSYCHOTIC DRUG LEVEL BELOW THERAPEUTIC [None]
  - ASCITES [None]
  - COGNITIVE DISORDER [None]
  - DEPRESSED LEVEL OF CONSCIOUSNESS [None]
  - DRUG ABUSE [None]
  - DRUG DEPENDENCE [None]
  - HEPATIC ENCEPHALOPATHY [None]
  - OEDEMA PERIPHERAL [None]
